FAERS Safety Report 13518380 (Version 1)
Quarter: 2017Q2

REPORT INFORMATION
  Report Type: Spontaneous
  Country: US (occurrence: US)
  Receive Date: 20170505
  Receipt Date: 20170505
  Transmission Date: 20170830
  Serious: Yes (Disabling)
  Sender: FDA-Public Use
  Company Number: None

PATIENT
  Age: 30 Year
  Sex: Male
  Weight: 85.5 kg

DRUGS (5)
  1. POTASSIUM [Concomitant]
     Active Substance: POTASSIUM
  2. VITAMIN D [Concomitant]
     Active Substance: CHOLECALCIFEROL
  3. MILK THISTLE [Concomitant]
     Active Substance: MILK THISTLE
  4. MULTIVITAMIN [Concomitant]
     Active Substance: VITAMINS
  5. XYREM [Suspect]
     Active Substance: SODIUM OXYBATE
     Indication: NARCOLEPSY
     Dosage: ?          QUANTITY:4.5 GRAMS;OTHER FREQUENCY:TWICE A NIGHT;?
     Route: 048
     Dates: start: 20130501

REACTIONS (3)
  - Enuresis [None]
  - Sleep apnoea syndrome [None]
  - Headache [None]

NARRATIVE: CASE EVENT DATE: 20170417
